FAERS Safety Report 21110443 (Version 2)
Quarter: 2022Q4

REPORT INFORMATION
  Report Type: Spontaneous
  Country: FR (occurrence: FR)
  Receive Date: 20220721
  Receipt Date: 20221006
  Transmission Date: 20230113
  Serious: Yes (Hospitalization, Other)
  Sender: FDA-Public Use
  Company Number: FR-NOVARTISPH-NVSC2022FR164622

PATIENT
  Age: 64 Year
  Sex: Male

DRUGS (6)
  1. TACROLIMUS [Suspect]
     Active Substance: TACROLIMUS
     Indication: Renal transplant
     Dosage: UNK
     Route: 065
  2. TACROLIMUS [Suspect]
     Active Substance: TACROLIMUS
     Indication: Immunosuppression
  3. PREDNISONE [Concomitant]
     Active Substance: PREDNISONE
     Indication: Renal transplant
     Dosage: UNK
     Route: 065
  4. PREDNISONE [Concomitant]
     Active Substance: PREDNISONE
     Indication: Immunosuppression
  5. MYCOPHENOLATE MOFETIL [Concomitant]
     Active Substance: MYCOPHENOLATE MOFETIL
     Indication: Renal transplant
     Dosage: UNK
     Route: 065
  6. MYCOPHENOLATE MOFETIL [Concomitant]
     Active Substance: MYCOPHENOLATE MOFETIL
     Indication: Immunosuppression

REACTIONS (14)
  - Diverticulitis [Unknown]
  - Lung disorder [Unknown]
  - Pyelonephritis [Unknown]
  - General physical health deterioration [Unknown]
  - Angiosarcoma [Unknown]
  - Abscess intestinal [Unknown]
  - Colitis [Unknown]
  - Renal graft infection [Unknown]
  - Perirectal abscess [Unknown]
  - Pneumocystis jirovecii pneumonia [Unknown]
  - Enterococcal infection [Unknown]
  - Klebsiella infection [Unknown]
  - Pneumonia [Unknown]
  - Malnutrition [Unknown]

NARRATIVE: CASE EVENT DATE: 20200701
